FAERS Safety Report 21304570 (Version 1)
Quarter: 2022Q3

REPORT INFORMATION
  Report Type: Spontaneous
  Country: US (occurrence: None)
  Receive Date: 20220907
  Receipt Date: 20220907
  Transmission Date: 20221026
  Serious: No
  Sender: FDA-Public Use
  Company Number: US-ARIS GLOBAL-202108-1543

PATIENT
  Age: 79 Year
  Sex: Male

DRUGS (32)
  1. OXERVATE [Suspect]
     Active Substance: CENEGERMIN-BKBJ
     Indication: Neurotrophic keratopathy
     Route: 047
     Dates: start: 20210817, end: 202109
  2. OXERVATE [Suspect]
     Active Substance: CENEGERMIN-BKBJ
     Route: 047
     Dates: start: 20211005
  3. LORAZEPAM [Concomitant]
     Active Substance: LORAZEPAM
  4. POTASSIUM CHLORIDE [Concomitant]
     Active Substance: POTASSIUM CHLORIDE
  5. ASPIRIN [Concomitant]
     Active Substance: ASPIRIN
  6. PREDNISONE [Concomitant]
     Active Substance: PREDNISONE
  7. CENTRUM SILVER TABLET [Concomitant]
  8. POLYETHYLENE GLYCOL [Concomitant]
     Active Substance: POLYETHYLENE GLYCOL
  9. DEXTROMETHORPHAN\GUAIFENESIN [Concomitant]
     Active Substance: DEXTROMETHORPHAN\GUAIFENESIN
  10. PANTOPRAZOLE SODIUM [Concomitant]
     Active Substance: PANTOPRAZOLE SODIUM
  11. BACITRACIN W/POLYMYXIN [Concomitant]
  12. ZIRGAN [Concomitant]
     Active Substance: GANCICLOVIR
  13. PREDNISONE MICRONIZED [Concomitant]
  14. DORZOLAMIDE HYDROCHLORIDE [Concomitant]
     Active Substance: DORZOLAMIDE HYDROCHLORIDE
  15. CHLORHEXIDINE DIACETATE [Concomitant]
     Active Substance: CHLORHEXIDINE DIACETATE
  16. VORICONAZOLE [Concomitant]
     Active Substance: VORICONAZOLE
  17. VANCOMYCIN HYDROCHLORIDE [Concomitant]
     Active Substance: VANCOMYCIN HYDROCHLORIDE
  18. CEFTAZIDIME [Concomitant]
     Active Substance: CEFTAZIDIME
  19. AMPHOTERICIN B [Concomitant]
     Active Substance: AMPHOTERICIN B
  20. OFLOXACIN [Concomitant]
     Active Substance: OFLOXACIN
  21. IPRATROPIUM W/ALBUTEROL [Concomitant]
  22. DULERA [Concomitant]
     Active Substance: FORMOTEROL FUMARATE DIHYDRATE\MOMETASONE FUROATE
  23. VALGANCICLOVIR HYDROCHLORIDE [Concomitant]
     Active Substance: VALGANCICLOVIR HYDROCHLORIDE
  24. TAMSULOSIN HYDROCHLORIDE [Concomitant]
     Active Substance: TAMSULOSIN HYDROCHLORIDE
  25. LOSARTAN POTASSIUM [Concomitant]
     Active Substance: LOSARTAN POTASSIUM
  26. IRON [Concomitant]
     Active Substance: IRON
  27. MEMANTINE [Concomitant]
     Active Substance: MEMANTINE
  28. ESCITALOPRAM OXALATE [Concomitant]
     Active Substance: ESCITALOPRAM OXALATE
  29. AZITHROMYCIN [Concomitant]
     Active Substance: AZITHROMYCIN
  30. ATORVASTATIN CALCIUM [Concomitant]
     Active Substance: ATORVASTATIN CALCIUM
  31. ELIQUIS [Concomitant]
     Active Substance: APIXABAN
  32. BUPROPION [Concomitant]
     Active Substance: BUPROPION

REACTIONS (3)
  - Product administration error [Unknown]
  - Headache [Unknown]
  - Ocular discomfort [Unknown]
